FAERS Safety Report 25842923 (Version 2)
Quarter: 2025Q4

REPORT INFORMATION
  Report Type: Report from Study
  Country: EG (occurrence: EG)
  Receive Date: 20250924
  Receipt Date: 20251013
  Transmission Date: 20260117
  Serious: Yes (Other)
  Sender: MERCK SHARP & DOHME LLC
  Company Number: EG-009507513-2331832

PATIENT
  Age: 79 Year
  Sex: Male

DRUGS (2)
  1. KEYTRUDA [Suspect]
     Active Substance: PEMBROLIZUMAB
     Indication: Metastatic malignant melanoma
     Route: 042
     Dates: start: 20250921
  2. KEYTRUDA [Suspect]
     Active Substance: PEMBROLIZUMAB
     Indication: Metastatic malignant melanoma
     Route: 042
     Dates: end: 202412

REACTIONS (16)
  - Prostate cancer [Unknown]
  - Hypotension [Recovered/Resolved]
  - Malignant neoplasm progression [Unknown]
  - Prostatomegaly [Unknown]
  - General physical health deterioration [Recovered/Resolved]
  - Frustration tolerance decreased [Unknown]
  - Off label use [Unknown]
  - Chemotherapy [Unknown]
  - Goitre [Unknown]
  - Thyroid calcification [Unknown]
  - Splenic calcification [Unknown]
  - Granuloma [Unknown]
  - Lymphadenopathy [Unknown]
  - Pulmonary mass [Unknown]
  - Bone disorder [Unknown]
  - Enostosis [Unknown]

NARRATIVE: CASE EVENT DATE: 20250831
